FAERS Safety Report 22121062 (Version 5)
Quarter: 2023Q4

REPORT INFORMATION
  Report Type: Spontaneous
  Country: CA (occurrence: CA)
  Receive Date: 20230321
  Receipt Date: 20231017
  Transmission Date: 20240110
  Serious: Yes (Other)
  Sender: FDA-Public Use
  Company Number: CA-PFIZER INC-PV202200086961

PATIENT
  Age: 58 Year
  Sex: Female
  Weight: 54.7 kg

DRUGS (3)
  1. IBRANCE [Suspect]
     Active Substance: PALBOCICLIB
     Dosage: 125 MG, DAILY
     Route: 048
     Dates: start: 20221103
  2. IBRANCE [Suspect]
     Active Substance: PALBOCICLIB
     Dosage: 75 MG, CYCLIC (DAILY FOR 21 DAYS WITH 1 WEEK BREAK )
     Route: 048
  3. EXEMESTANE [Concomitant]
     Active Substance: EXEMESTANE
     Dosage: UNK

REACTIONS (3)
  - Hysterectomy [Unknown]
  - Liver disorder [Unknown]
  - Cardiac disorder [Unknown]
